FAERS Safety Report 6353927-8 (Version None)
Quarter: 2009Q3

REPORT INFORMATION
  Report Type: 
  Country: None (occurrence: None)
  Receive Date: 20090912
  Receipt Date: 20090622
  Transmission Date: 20100115
  Serious: No
  Sender: FDA-Public Use
  Company Number: US-ABBOTT-08P-163-0483124-00

PATIENT
  Sex: Male
  Weight: 109 kg

DRUGS (11)
  1. HUMIRA [Suspect]
     Indication: ANKYLOSING SPONDYLITIS
     Route: 058
     Dates: start: 20070101
  2. ROSUVASTATIN CALCIUM [Concomitant]
     Indication: BLOOD CHOLESTEROL INCREASED
     Route: 048
  3. BALSALAZIDE DISODIUM [Concomitant]
     Indication: DRUG USE FOR UNKNOWN INDICATION
     Route: 048
  4. LISINOPRIL [Concomitant]
     Indication: HYPERTENSION
     Route: 048
  5. TRAMADOL HCL [Concomitant]
     Indication: PAIN
     Route: 048
  6. GABAPENTIN [Concomitant]
     Indication: PAIN
     Route: 048
  7. GABAPENTIN [Concomitant]
     Indication: PARAESTHESIA
  8. GABAPENTIN [Concomitant]
     Indication: NERVOUS SYSTEM DISORDER
  9. SOTALOL HYDROCHLORIDE [Concomitant]
     Indication: CARDIAC DISORDER
     Route: 048
  10. COUMADIN [Concomitant]
     Indication: ANTICOAGULANT THERAPY
     Route: 048
  11. DICLOSIN [Concomitant]
     Indication: DRUG USE FOR UNKNOWN INDICATION

REACTIONS (2)
  - ARTHRALGIA [None]
  - INCORRECT DOSE ADMINISTERED [None]
